FAERS Safety Report 4511258-2 (Version None)
Quarter: 2004Q4

REPORT INFORMATION
  Report Type: 
  Country: None (occurrence: None)
  Receive Date: 20041122
  Receipt Date: 20041122
  Transmission Date: 20050328
  Serious: Yes (Hospitalization)
  Sender: FDA-Public Use
  Company Number: None

PATIENT
  Age: 72 Year
  Sex: Male

DRUGS (9)
  1. CELEBREX [Suspect]
     Indication: BACK PAIN
     Dosage: 100MG  DAILY ORAL
     Route: 048
     Dates: start: 20040101, end: 20041023
  2. ASPIRIN [Suspect]
     Indication: CARDIAC DISORDER
     Dosage: 81MG  DAILY ORAL
     Route: 048
     Dates: start: 20030101, end: 20041023
  3. ASPIRIN [Suspect]
     Indication: PROPHYLAXIS
     Dosage: 81MG  DAILY ORAL
     Route: 048
     Dates: start: 20030101, end: 20041023
  4. PLAVIX [Concomitant]
  5. ZESTRIL [Concomitant]
  6. HYTRIN [Concomitant]
  7. ZELNORM [Concomitant]
  8. HUMALOG [Concomitant]
  9. LANTUS [Concomitant]

REACTIONS (5)
  - ASTHENIA [None]
  - FALL [None]
  - GASTROINTESTINAL HAEMORRHAGE [None]
  - PALPITATIONS [None]
  - ULCER [None]
